FAERS Safety Report 6847880-8 (Version None)
Quarter: 2010Q3

REPORT INFORMATION
  Report Type: 
  Country: None (occurrence: None)
  Receive Date: 20100716
  Receipt Date: 20100707
  Transmission Date: 20110219
  Serious: Yes (Hospitalization)
  Sender: FDA-Public Use
  Company Number: AU-PFIZER INC-2010024217

PATIENT
  Age: 51 Year
  Sex: Female
  Weight: 57 kg

DRUGS (4)
  1. IDARUBICIN HCL [Suspect]
     Indication: ACUTE MYELOID LEUKAEMIA
     Dosage: 13.9 MG, DAILY X 2 DAYS
     Route: 042
     Dates: start: 20100208, end: 20100209
  2. CYTARABINE [Suspect]
     Indication: ACUTE MYELOID LEUKAEMIA
     Dosage: 154 MG, DAILY X 5 DAYS
     Route: 042
     Dates: start: 20100208, end: 20100213
  3. ETOPOSIDE [Suspect]
     Indication: ACUTE MYELOID LEUKAEMIA
     Dosage: 115.3 MG, DAILY X 5 DAYS
     Route: 042
     Dates: start: 20100208, end: 20100212
  4. PEGFILGRASTIM [Suspect]
     Indication: ACUTE MYELOID LEUKAEMIA
     Dosage: 6 MG, DAILY X 1
     Route: 058
     Dates: start: 20091202, end: 20100214

REACTIONS (1)
  - FEBRILE NEUTROPENIA [None]
